FAERS Safety Report 14948187 (Version 2)
Quarter: 2018Q3

REPORT INFORMATION
  Report Type: Spontaneous
  Country: DE (occurrence: DE)
  Receive Date: 20180529
  Receipt Date: 20180705
  Transmission Date: 20181010
  Serious: Yes (Death)
  Sender: FDA-Public Use
  Company Number: DE-NAPPMUNDI-GBR-2018-0056082

PATIENT
  Age: 90 Year
  Sex: Female

DRUGS (12)
  1. TARGIN [Suspect]
     Active Substance: NALOXONE HYDROCHLORIDE\OXYCODONE HYDROCHLORIDE
     Indication: PAIN
     Dosage: 20/10 MG, BID
     Route: 065
     Dates: start: 20171021, end: 20171021
  2. DIPIDOLOR [Concomitant]
     Active Substance: PIRITRAMIDE
     Dosage: 1?2 TIMES HALF OF AN AMPOULE
     Route: 065
     Dates: start: 20171018, end: 20171018
  3. PARACETAMOL [Concomitant]
     Active Substance: ACETAMINOPHEN
  4. METOPROLOL. [Concomitant]
     Active Substance: METOPROLOL
  5. DEKRISTOL [Concomitant]
     Active Substance: CHOLECALCIFEROL
  6. APIXABAN [Concomitant]
     Active Substance: APIXABAN
  7. TARGIN [Suspect]
     Active Substance: NALOXONE HYDROCHLORIDE\OXYCODONE HYDROCHLORIDE
     Dosage: 20/10MG, BID
     Route: 065
     Dates: start: 20171018, end: 20171018
  8. CORDAREX [Concomitant]
     Active Substance: AMIODARONE
  9. DIPIDOLOR [Concomitant]
     Active Substance: PIRITRAMIDE
     Indication: PRODUCT USED FOR UNKNOWN INDICATION
     Dosage: 1?2 TIMES HALF OF AN AMPOULE
     Route: 065
     Dates: start: 20171021, end: 20171021
  10. XIPAMID [Concomitant]
     Active Substance: XIPAMIDE
  11. TORASEMIDE [Concomitant]
     Active Substance: TORSEMIDE
  12. FRAGMIN [Concomitant]
     Active Substance: DALTEPARIN SODIUM

REACTIONS (3)
  - Cardiac output decreased [Fatal]
  - Cardiac valve disease [Fatal]
  - Wrong technique in product usage process [Unknown]

NARRATIVE: CASE EVENT DATE: 20171018
